FAERS Safety Report 4641639-8 (Version None)
Quarter: 2005Q2

REPORT INFORMATION
  Report Type: 
  Country: None (occurrence: None)
  Receive Date: 20050420
  Receipt Date: 20050331
  Transmission Date: 20051028
  Serious: Yes (Death, Other)
  Sender: FDA-Public Use
  Company Number: 2005-BP-05289MX

PATIENT
  Age: 66 Year
  Sex: Male

DRUGS (1)
  1. COMBIVENT [Suspect]
     Indication: ASTHMA
     Dosage: 0.5/2.5 MG (SEE TEXT, 1 LOH OD
     Route: 030
     Dates: start: 20050301, end: 20050301

REACTIONS (2)
  - ACUTE MYOCARDIAL INFARCTION [None]
  - INCORRECT ROUTE OF DRUG ADMINISTRATION [None]
